FAERS Safety Report 5324965-9 (Version None)
Quarter: 2007Q2

REPORT INFORMATION
  Report Type: 
  Country: None (occurrence: None)
  Receive Date: 20070510
  Receipt Date: 20070510
  Transmission Date: 20071010
  Serious: Yes (Death)
  Sender: FDA-Public Use
  Company Number: None

PATIENT
  Sex: Female

DRUGS (3)
  1. FLUDARABINE PHOSPHATE [Suspect]
     Indication: HAEMATOPOIETIC STEM CELL MOBILISATION
     Dosage: 45 DAILY IV DRIP
     Route: 041
     Dates: start: 20060830, end: 20060903
  2. CAMPATH [Suspect]
     Indication: HAEMATOPOIETIC STEM CELL MOBILISATION
     Dosage: 20 DAILY IV DRIP
     Route: 041
     Dates: start: 20060830, end: 20060903
  3. BUSULFAN [Suspect]
     Dosage: 232X 2DAYS 100MG X2 DAYS DAILY IV DRIP
     Route: 041
     Dates: start: 20060831, end: 20060903

REACTIONS (5)
  - CONFUSIONAL STATE [None]
  - ELECTROLYTE IMBALANCE [None]
  - MENTAL STATUS CHANGES [None]
  - NEUTROPENIA [None]
  - PYREXIA [None]
